FAERS Safety Report 7385774-2 (Version None)
Quarter: 2011Q1

REPORT INFORMATION
  Report Type: 
  Country: None (occurrence: None)
  Receive Date: 20110331
  Receipt Date: 20110310
  Transmission Date: 20110831
  Serious: Yes (Death, Other)
  Sender: FDA-Public Use
  Company Number: US-BAYER-201011340NA

PATIENT
  Sex: Male

DRUGS (19)
  1. PRILOSEC [Concomitant]
     Dosage: 20 MG, HS
  2. EPINEPHRINE [Concomitant]
     Dosage: DRIP AFTER RESURGERY
     Route: 041
  3. UNCODEABLE ^UNKNOWN MANUFACTURER^ [Concomitant]
  4. LIDOCAINE [Concomitant]
     Dosage: 1 AMPOULE
  5. TRASYLOL [Suspect]
     Indication: CORONARY ARTERY BYPASS
     Dates: start: 20070307
  6. LOVASTATIN [Concomitant]
     Dosage: 20 MG, HS
  7. MULTI-VITAMIN [Concomitant]
     Dosage: DAILY
  8. METOPROLOL TARTRATE [Concomitant]
     Dosage: 25MG IN THE EVENING
  9. VANCOMYCIN [Concomitant]
  10. ACCUPRIL [Concomitant]
     Dosage: 10 MG, BID
  11. METOPROLOL TARTRATE [Concomitant]
     Dosage: 50MG IN THE MORNING
  12. GLUCOSAMINE [GLUCOSAMINE SULFATE] [Concomitant]
     Dosage: UNK UNK, QD
  13. ROCEPHIN [Concomitant]
  14. EPINEPHRINE [Concomitant]
     Dosage: 1 AMPULE TWICE
  15. DOPAMINE HCL [Concomitant]
     Dosage: DRIP AFTER RESURGERY
     Route: 041
  16. BETA BLOCKING AGENTS AND VASODILATORS [Concomitant]
  17. ADVIL [IBUPROFEN] [Concomitant]
     Dosage: 200 MG, PRN
  18. CIPRO [Concomitant]
  19. DIFLUCAN [Concomitant]

REACTIONS (14)
  - INJURY [None]
  - RENAL FAILURE [None]
  - FEAR [None]
  - DEPRESSION [None]
  - PAIN [None]
  - ANHEDONIA [None]
  - RENAL INJURY [None]
  - ANXIETY [None]
  - DEATH [None]
  - CEREBROVASCULAR ACCIDENT [None]
  - CARDIAC DISORDER [None]
  - ORGAN FAILURE [None]
  - RENAL IMPAIRMENT [None]
  - UNEVALUABLE EVENT [None]
